FAERS Safety Report 23263640 (Version 1)
Quarter: 2023Q4

REPORT INFORMATION
  Report Type: Spontaneous
  Country: BE (occurrence: BE)
  Receive Date: 20231205
  Receipt Date: 20231205
  Transmission Date: 20240109
  Serious: Yes (Life-Threatening)
  Sender: FDA-Public Use
  Company Number: None

PATIENT

DRUGS (1)
  1. DINOPROSTONE [Suspect]
     Active Substance: DINOPROSTONE
     Indication: Labour induction
     Route: 067
     Dates: start: 20230914, end: 20230914

REACTIONS (2)
  - Uterine hyperstimulation [Recovered/Resolved]
  - Cervix haemorrhage uterine [Recovered/Resolved]

NARRATIVE: CASE EVENT DATE: 20231014
